FAERS Safety Report 5793198-4 (Version None)
Quarter: 2008Q2

REPORT INFORMATION
  Report Type: 
  Country: None (occurrence: None)
  Receive Date: 20080626
  Receipt Date: 20080626
  Transmission Date: 20081010
  Serious: Yes (Death)
  Sender: FDA-Public Use
  Company Number: None

PATIENT
  Age: 81 Year
  Sex: Male

DRUGS (1)
  1. LOVENOX [Suspect]
     Dosage: 80 MG BID SQ
     Route: 058

REACTIONS (1)
  - INTERNATIONAL NORMALISED RATIO INCREASED [None]
